FAERS Safety Report 11485939 (Version 1)
Quarter: 2015Q3

REPORT INFORMATION
  Report Type: Spontaneous
  Country: US (occurrence: US)
  Receive Date: 20150910
  Receipt Date: 20150910
  Transmission Date: 20151125
  Serious: No
  Sender: FDA-Public Use
  Company Number: US-ORCHID HEALTHCARE-1041784

PATIENT
  Age: 17 Year
  Sex: Male

DRUGS (2)
  1. CEFDINIR. [Suspect]
     Active Substance: CEFDINIR
     Route: 048
  2. CEFDINIR. [Suspect]
     Active Substance: CEFDINIR
     Indication: INFECTION
     Route: 048

REACTIONS (2)
  - Rash erythematous [Recovered/Resolved]
  - Pruritus generalised [Recovered/Resolved]
